FAERS Safety Report 20194221 (Version 1)
Quarter: 2021Q4

REPORT INFORMATION
  Report Type: Spontaneous
  Country: US (occurrence: None)
  Receive Date: 20211216
  Receipt Date: 20211216
  Transmission Date: 20220303
  Serious: No
  Sender: FDA-Public Use
  Company Number: None

PATIENT
  Age: 33 Year
  Sex: Female

DRUGS (1)
  1. VERZENIO [Suspect]
     Active Substance: ABEMACICLIB
     Indication: Gastric disorder
     Dosage: FREQUENCY : TWICE A DAY;?
     Route: 048
     Dates: start: 20210512

REACTIONS (2)
  - Gastric disorder [None]
  - Loss of personal independence in daily activities [None]

NARRATIVE: CASE EVENT DATE: 20210630
